FAERS Safety Report 4590350-0 (Version None)
Quarter: 2005Q1

REPORT INFORMATION
  Report Type: 
  Country: None (occurrence: None)
  Receive Date: 20050217
  Receipt Date: 20050209
  Transmission Date: 20050727
  Serious: No
  Sender: FDA-Public Use
  Company Number: 2005UW2250

PATIENT

DRUGS (3)
  1. SEROQUEL [Suspect]
     Indication: MYASTHENIA GRAVIS
     Dosage: 500 MG QD PO
     Route: 048
  2. PYRIDOSTIGMINE BROMIDE [Suspect]
     Indication: MYASTHENIA GRAVIS
  3. PARNATE [Suspect]
     Dosage: 30 MG QD

REACTIONS (4)
  - DRUG INTERACTION [None]
  - DYSPNOEA [None]
  - MUSCULAR WEAKNESS [None]
  - OCULAR MYASTHENIA [None]
